FAERS Safety Report 7066539-8 (Version None)
Quarter: 2010Q4

REPORT INFORMATION
  Report Type: 
  Country: None (occurrence: None)
  Receive Date: 20101027
  Receipt Date: 20100326
  Transmission Date: 20110411
  Serious: No
  Sender: FDA-Public Use
  Company Number: US-WYE-H13918610

PATIENT
  Sex: Female

DRUGS (2)
  1. PREMPRO [Suspect]
     Indication: HOT FLUSH
     Route: 048
     Dates: start: 20090101, end: 20100301
  2. SERTRALINE HYDROCHLORIDE [Concomitant]

REACTIONS (7)
  - CONDITION AGGRAVATED [None]
  - DEPRESSION [None]
  - DRUG INEFFECTIVE [None]
  - MIDDLE INSOMNIA [None]
  - NIGHT SWEATS [None]
  - PERSONALITY CHANGE [None]
  - PRODUCT QUALITY ISSUE [None]
